FAERS Safety Report 18897942 (Version 3)
Quarter: 2022Q4

REPORT INFORMATION
  Report Type: Report from Study
  Country: US (occurrence: US)
  Receive Date: 20210216
  Receipt Date: 20221205
  Transmission Date: 20230113
  Serious: Yes (Hospitalization)
  Sender: FDA-Public Use
  Company Number: US-BIOGEN-2021BI00976773

PATIENT
  Sex: Female

DRUGS (1)
  1. TYSABRI [Suspect]
     Active Substance: NATALIZUMAB
     Indication: Multiple sclerosis
     Route: 050
     Dates: start: 20200602, end: 20201203

REACTIONS (7)
  - Full blood count abnormal [Unknown]
  - Full blood count decreased [Recovered/Resolved]
  - Urinary retention [Unknown]
  - Renal disorder [Unknown]
  - Drug ineffective [Unknown]
  - Malaise [Recovered/Resolved]
  - Memory impairment [Not Recovered/Not Resolved]

NARRATIVE: CASE EVENT DATE: 20200101
